FAERS Safety Report 14784824 (Version 1)
Quarter: 2018Q2

REPORT INFORMATION
  Report Type: Spontaneous
  Country: KR (occurrence: KR)
  Receive Date: 20180420
  Receipt Date: 20180420
  Transmission Date: 20180711
  Serious: Yes (Other)
  Sender: FDA-Public Use
  Company Number: KR-LANNETT COMPANY, INC.-KR-2018LAN000622

PATIENT
  Age: 43 Year
  Sex: Male

DRUGS (7)
  1. RANITIDINE. [Concomitant]
     Active Substance: RANITIDINE
     Indication: PARAPLEGIA
     Dosage: UNK
  2. LOXOPROFEN [Concomitant]
     Active Substance: LOXOPROFEN
     Indication: PARAPLEGIA
     Dosage: UNK
  3. LEVOSULPIRIDE [Concomitant]
     Active Substance: LEVOSULPIRIDE
     Indication: PARAPLEGIA
     Dosage: UNK
  4. VALSARTAN. [Concomitant]
     Active Substance: VALSARTAN
     Indication: HYPERTENSION
     Dosage: UNK
     Route: 065
  5. KALLIDINOGENASE [Concomitant]
     Active Substance: KALLIDINOGENASE
     Indication: PARAPLEGIA
     Dosage: UNK
  6. PHLOROGLUCINOL [Concomitant]
     Active Substance: PHLOROGLUCINOL
     Indication: PARAPLEGIA
     Dosage: UNK
  7. HYDROCHLOROTHIAZIDE; TRIAMTERENE [Suspect]
     Active Substance: HYDROCHLOROTHIAZIDE\TRIAMTERENE
     Indication: HYPERTENSION
     Dosage: UNK
     Route: 065

REACTIONS (2)
  - Skin necrosis [Recovered/Resolved]
  - Raynaud^s phenomenon [Recovered/Resolved]
